FAERS Safety Report 6413968-9 (Version None)
Quarter: 2009Q4

REPORT INFORMATION
  Report Type: 
  Country: None (occurrence: None)
  Receive Date: 20091022
  Receipt Date: 20091022
  Transmission Date: 20100525
  Serious: Yes (Other)
  Sender: FDA-Public Use
  Company Number: None

PATIENT
  Age: 50 Year
  Sex: Female

DRUGS (4)
  1. ABILIFY [Suspect]
     Indication: BORDERLINE PERSONALITY DISORDER
     Dosage: 30MG PO DAILY RECENTLY  STARTED
     Route: 048
  2. ABILIFY [Suspect]
     Indication: DEPRESSION
     Dosage: 30MG PO DAILY RECENTLY  STARTED
     Route: 048
  3. BACLOFEN [Concomitant]
  4. BENZO [Concomitant]

REACTIONS (3)
  - FATIGUE [None]
  - PAIN [None]
  - SOMNOLENCE [None]
